FAERS Safety Report 6320299-4 (Version None)
Quarter: 2009Q3

REPORT INFORMATION
  Report Type: 
  Country: None (occurrence: None)
  Receive Date: 20090822
  Receipt Date: 20081029
  Transmission Date: 20100115
  Serious: No
  Sender: FDA-Public Use
  Company Number: US-ABBOTT-08P-163-0484748-00

PATIENT
  Sex: Female

DRUGS (7)
  1. NIASPAN [Suspect]
     Indication: LOW DENSITY LIPOPROTEIN INCREASED
  2. NIASPAN [Suspect]
     Indication: BLOOD TRIGLYCERIDES INCREASED
  3. NIASPAN [Suspect]
     Indication: HIGH DENSITY LIPOPROTEIN DECREASED
  4. ROSUVASTATIN [Concomitant]
     Indication: DRUG USE FOR UNKNOWN INDICATION
  5. UNKNOWN MEDICATION [Concomitant]
     Indication: BLOOD PRESSURE
     Dosage: NOT REPORTED NOT REPORTED
  6. UNKNOWN MEDICATION [Concomitant]
     Indication: DIURETIC THERAPY
     Dosage: NOT REPORTED
  7. ASPIRIN [Concomitant]
     Indication: DRUG USE FOR UNKNOWN INDICATION

REACTIONS (2)
  - HEADACHE [None]
  - INSOMNIA [None]
